FAERS Safety Report 10416519 (Version 12)
Quarter: 2016Q1

REPORT INFORMATION
  Report Type: Report from Study
  Country: US (occurrence: US)
  Receive Date: 20140828
  Receipt Date: 20160108
  Transmission Date: 20160525
  Serious: Yes (Hospitalization, Other)
  Sender: FDA-Public Use
  Company Number: US-ALEXION-A201403208

PATIENT
  Sex: Male

DRUGS (2)
  1. SOLIRIS [Suspect]
     Active Substance: ECULIZUMAB
     Indication: HAEMOLYTIC URAEMIC SYNDROME
     Dosage: UNK
     Route: 042
  2. SOLIRIS [Suspect]
     Active Substance: ECULIZUMAB
     Dosage: UNK
     Route: 042

REACTIONS (23)
  - Hepatic cancer [Unknown]
  - Pain in extremity [Not Recovered/Not Resolved]
  - Lung disorder [Unknown]
  - Pancreatic carcinoma [Unknown]
  - Dyspnoea exertional [Unknown]
  - Hepatic pain [Unknown]
  - Peripheral swelling [Recovering/Resolving]
  - Neoplasm malignant [Recovered/Resolved]
  - Haemoglobin abnormal [Unknown]
  - Full blood count decreased [Unknown]
  - Dyspnoea [Unknown]
  - Peripheral swelling [Not Recovered/Not Resolved]
  - Biopsy liver abnormal [Not Recovered/Not Resolved]
  - Headache [Unknown]
  - Dyspnoea exertional [Recovering/Resolving]
  - Haemoglobin increased [Unknown]
  - Biopsy kidney [Unknown]
  - Renal impairment [Recovered/Resolved]
  - Proteinuria [Unknown]
  - Weight decreased [Unknown]
  - Platelet count increased [Unknown]
  - Neck pain [Unknown]
  - Laboratory test abnormal [Unknown]

NARRATIVE: CASE EVENT DATE: 20140901
